FAERS Safety Report 7129123-3 (Version None)
Quarter: 2010Q4

REPORT INFORMATION
  Report Type: 
  Country: None (occurrence: None)
  Receive Date: 20101130
  Receipt Date: 20101123
  Transmission Date: 20110411
  Serious: Yes (Death, Other)
  Sender: FDA-Public Use
  Company Number: CA-MEDIMMUNE-MEDI-0011839

PATIENT
  Age: 2 Month

DRUGS (1)
  1. SYNAGIS [Suspect]

REACTIONS (2)
  - INFECTION [None]
  - NECROSIS [None]
